FAERS Safety Report 6752639-6 (Version None)
Quarter: 2010Q2

REPORT INFORMATION
  Report Type: 
  Country: None (occurrence: None)
  Receive Date: 20100602
  Receipt Date: 20100519
  Transmission Date: 20101027
  Serious: Yes (Other)
  Sender: FDA-Public Use
  Company Number: CA-GENENTECH-295874

PATIENT
  Sex: Male
  Weight: 100 kg

DRUGS (4)
  1. XOLAIR [Suspect]
     Indication: ASTHMA
     Dosage: 225 MG, 2/WEEK
     Route: 058
     Dates: start: 20060308
  2. XOLAIR [Suspect]
     Dosage: UNK
     Dates: start: 20070526
  3. XOLAIR [Suspect]
     Dosage: 225 MG, 2/WEEK
     Route: 058
     Dates: start: 20091202
  4. XOLAIR [Suspect]
     Dosage: 225 MG, 2/WEEK
     Route: 058

REACTIONS (9)
  - ASTHENIA [None]
  - ASTHMA [None]
  - BLOOD PRESSURE DECREASED [None]
  - FATIGUE [None]
  - NASOPHARYNGITIS [None]
  - PRODUCTIVE COUGH [None]
  - RESPIRATORY TRACT CONGESTION [None]
  - SINUS CONGESTION [None]
  - SPUTUM DISCOLOURED [None]
